FAERS Safety Report 8401982-3 (Version None)
Quarter: 2012Q2

REPORT INFORMATION
  Report Type: 
  Country: None (occurrence: None)
  Receive Date: 20120601
  Receipt Date: 20120529
  Transmission Date: 20120825
  Serious: Yes (Death)
  Sender: FDA-Public Use
  Company Number: ES-PFIZER INC-2012058146

PATIENT
  Age: 65 Year
  Sex: Female

DRUGS (3)
  1. ENANTYUM [Concomitant]
  2. TRAMADOL HCL [Concomitant]
  3. TORISEL [Suspect]
     Indication: RENAL CELL CARCINOMA
     Dosage: UNK
     Dates: start: 20110401, end: 20111101

REACTIONS (7)
  - RENAL CELL CARCINOMA [None]
  - DISEASE PROGRESSION [None]
  - ANAEMIA [None]
  - DIARRHOEA [None]
  - HYPERTRANSAMINASAEMIA [None]
  - DEATH [None]
  - ASTHENIA [None]
